FAERS Safety Report 5917239-6 (Version None)
Quarter: 2008Q4

REPORT INFORMATION
  Report Type: 
  Country: None (occurrence: None)
  Receive Date: 20081014
  Receipt Date: 20080930
  Transmission Date: 20090506
  Serious: Yes (Other)
  Sender: FDA-Public Use
  Company Number: CH-ELI_LILLY_AND_COMPANY-CH200809005745

PATIENT
  Age: 69 Year
  Sex: Male
  Weight: 85 kg

DRUGS (5)
  1. HUMALOG [Suspect]
     Indication: TYPE 2 DIABETES MELLITUS
     Dosage: 12 U, DAILY (1/D)
     Route: 058
     Dates: start: 20021001
  2. HUMALOG [Suspect]
     Dosage: 12 U, DAILY (1/D)
     Route: 058
     Dates: start: 20021001
  3. HUMALOG [Suspect]
     Dosage: 14 U, DAILY (1/D)
     Route: 058
     Dates: start: 20021001
  4. LANTUS [Concomitant]
     Dosage: 52 U, EACH EVENING
     Route: 058
  5. ANTI-DIABETICS [Concomitant]
     Route: 048

REACTIONS (1)
  - HYPERGLYCAEMIA [None]
